FAERS Safety Report 24934422 (Version 2)
Quarter: 2025Q4

REPORT INFORMATION
  Report Type: Spontaneous
  Country: GB (occurrence: GB)
  Receive Date: 20250206
  Receipt Date: 20251223
  Transmission Date: 20260118
  Serious: Yes (Death, Hospitalization, Other)
  Sender: EXELIXIS
  Company Number: GB-IPSEN Group, Research and Development-2024-22904

PATIENT
  Age: 49 Year
  Sex: Male
  Weight: 88 kg

DRUGS (3)
  1. CABOMETYX [Suspect]
     Active Substance: CABOZANTINIB S-MALATE
     Indication: Pancreatic neuroendocrine tumour metastatic
     Dosage: 40 MG OD
     Route: 048
     Dates: start: 20240815
  2. CABOMETYX [Suspect]
     Active Substance: CABOZANTINIB S-MALATE
     Indication: Off label use
     Dosage: 40 MG OD
     Route: 048
     Dates: start: 20241014, end: 20251022
  3. DENOSUMAB [Concomitant]
     Active Substance: DENOSUMAB
     Indication: Pancreatic neuroendocrine tumour metastatic
     Dosage: UNK
     Dates: start: 202408

REACTIONS (7)
  - Capillary leak syndrome [Fatal]
  - Peripheral swelling [Unknown]
  - Swelling [Unknown]
  - Pancreatic neuroendocrine tumour metastatic [Fatal]
  - Palmar-plantar erythrodysaesthesia syndrome [Recovered/Resolved]
  - Palmar-plantar erythrodysaesthesia syndrome [Recovering/Resolving]
  - Off label use [Unknown]

NARRATIVE: CASE EVENT DATE: 20110201
